FAERS Safety Report 8327641-3 (Version None)
Quarter: 2012Q2

REPORT INFORMATION
  Report Type: 
  Country: None (occurrence: None)
  Receive Date: 20120502
  Receipt Date: 20120423
  Transmission Date: 20120825
  Serious: Yes (Hospitalization, Other)
  Sender: FDA-Public Use
  Company Number: US-BAYER-2012-022697

PATIENT
  Age: 36 Year
  Sex: Female

DRUGS (12)
  1. YAZ [Suspect]
     Indication: PRODUCT USED FOR UNKNOWN INDICATION
     Dosage: UNK
  2. HYDROMORPHONE HCL [Concomitant]
     Dosage: 2 MG, UNK
     Dates: start: 20090320
  3. ZOLPIDEM TARTRATE [Concomitant]
     Dosage: UNK
     Dates: start: 20090116
  4. ACETAMINOPHEN W/ CODEINE [Concomitant]
     Dosage: UNK
     Dates: start: 20090304
  5. CYANOCOBALAMIN [Concomitant]
     Dosage: UNK
     Dates: start: 20090115
  6. KETOROLAC TROMETHAMINE [Concomitant]
     Dosage: 10 MG, UNK
     Dates: start: 20090211, end: 20090330
  7. LEVAQUIN [Concomitant]
     Dosage: UNK
     Dates: start: 20090220
  8. SKELAXIN [Concomitant]
     Dosage: 800 MG, UNK
  9. TORADOL [Concomitant]
     Dosage: UNK
     Dates: start: 20090401
  10. YASMIN [Suspect]
     Indication: PRODUCT USED FOR UNKNOWN INDICATION
     Dosage: UNK
     Dates: end: 20090407
  11. OXYCODONE HCL [Concomitant]
     Dosage: 10 MG, Q4HR
  12. DILAUDID [Concomitant]
     Dosage: UNK
     Dates: start: 20090401

REACTIONS (4)
  - THROMBOSIS [None]
  - INJURY [None]
  - PAIN [None]
  - PULMONARY EMBOLISM [None]
